FAERS Safety Report 13301670 (Version 1)
Quarter: 2017Q1

REPORT INFORMATION
  Report Type: Spontaneous
  Country: IL (occurrence: IL)
  Receive Date: 20170307
  Receipt Date: 20170307
  Transmission Date: 20170428
  Serious: Yes (Other)
  Sender: FDA-Public Use
  Company Number: IL-AMGEN-ISRSP2017023557

PATIENT
  Age: 75 Year
  Sex: Female

DRUGS (1)
  1. PROLIA [Suspect]
     Active Substance: DENOSUMAB
     Indication: PRODUCT USED FOR UNKNOWN INDICATION
     Dosage: 60 MG, Q6MO
     Route: 058
     Dates: start: 201402, end: 201509

REACTIONS (2)
  - Dental care [Unknown]
  - Spinal fracture [Unknown]
